FAERS Safety Report 21586903 (Version 1)
Quarter: 2022Q4

REPORT INFORMATION
  Report Type: Spontaneous
  Country: US (occurrence: None)
  Receive Date: 20221110
  Receipt Date: 20221110
  Transmission Date: 20230113
  Serious: No
  Sender: FDA-Public Use
  Company Number: None

PATIENT
  Sex: Female

DRUGS (1)
  1. OPSUMIT [Suspect]
     Active Substance: MACITENTAN
     Indication: Pulmonary arterial hypertension
     Dosage: FREQUENCY : DAILY;?
     Dates: start: 20191203

REACTIONS (6)
  - Fatigue [None]
  - Nausea [None]
  - Decreased appetite [None]
  - Loss of personal independence in daily activities [None]
  - Dose calculation error [None]
  - Drug ineffective [None]
